FAERS Safety Report 7953613-4 (Version None)
Quarter: 2011Q4

REPORT INFORMATION
  Report Type: 
  Country: None (occurrence: None)
  Receive Date: 20111129
  Receipt Date: 20111114
  Transmission Date: 20120403
  Serious: Yes (Other)
  Sender: FDA-Public Use
  Company Number: 2011P1011480

PATIENT

DRUGS (3)
  1. ROUTINE ANTIEMETICS [Concomitant]
  2. S-1 [Concomitant]
  3. IRINOTECAN (NO PREF. NAME) [Suspect]
     Indication: CHEMOTHERAPY
     Dosage: 150 MG/M^2;DAYS 1+15;Q4WK;IV
     Route: 042

REACTIONS (1)
  - PALMAR-PLANTAR ERYTHRODYSAESTHESIA SYNDROME [None]
